FAERS Safety Report 18930916 (Version 1)
Quarter: 2021Q1

REPORT INFORMATION
  Report Type: Report from Study
  Country: US (occurrence: US)
  Receive Date: 20210223
  Receipt Date: 20210223
  Transmission Date: 20210420
  Serious: Yes (Other)
  Sender: FDA-Public Use
  Company Number: US-GILEAD-2020-0473233

PATIENT
  Sex: Male

DRUGS (1)
  1. AXICABTAGENE CILOLEUCEL [Suspect]
     Active Substance: AXICABTAGENE CILOLEUCEL
     Indication: DIFFUSE LARGE B-CELL LYMPHOMA
     Dosage: UNK
     Route: 042
     Dates: start: 20180910, end: 20180910

REACTIONS (8)
  - Peroneal nerve palsy [Unknown]
  - Renal impairment [Unknown]
  - Memory impairment [Recovered/Resolved]
  - Seizure [Unknown]
  - Confusional state [Unknown]
  - Cytokine storm [Unknown]
  - Cognitive disorder [Unknown]
  - Neurotoxicity [Unknown]
